FAERS Safety Report 4524259-5 (Version None)
Quarter: 2004Q4

REPORT INFORMATION
  Report Type: 
  Country: None (occurrence: None)
  Receive Date: 20041119
  Receipt Date: 20041005
  Transmission Date: 20050328
  Serious: No
  Sender: FDA-Public Use
  Company Number: PHEH2004US10739

PATIENT
  Age: 57 Year
  Sex: Female

DRUGS (10)
  1. ZELNORM [Suspect]
     Indication: IMPAIRED GASTRIC EMPTYING
     Dosage: 6 MG, BID, UNK (SEE IMAGE)
     Route: 065
     Dates: start: 20040909, end: 20041003
  2. ZELNORM [Suspect]
     Indication: IMPAIRED GASTRIC EMPTYING
     Dosage: 6 MG, BID, UNK (SEE IMAGE)
     Route: 065
     Dates: start: 20041007
  3. AVANDAMET (ROSIGLITAZONE MALEATE) [Concomitant]
  4. LIPITOR [Concomitant]
  5. HYDROCHLOROTHIAZIDE [Concomitant]
  6. XANAX [Concomitant]
  7. PRILOSEC [Concomitant]
  8. PAXIL [Concomitant]
  9. COLACE [Concomitant]
  10. PERI-COLACE (CASANTHRANOL) [Concomitant]

REACTIONS (3)
  - CONSTIPATION [None]
  - DRY MOUTH [None]
  - DYSGEUSIA [None]
